FAERS Safety Report 7323304-1 (Version None)
Quarter: 2011Q1

REPORT INFORMATION
  Report Type: 
  Country: None (occurrence: None)
  Receive Date: 20110217
  Receipt Date: 20110204
  Transmission Date: 20110831
  Serious: Yes (Other)
  Sender: FDA-Public Use
  Company Number: 2011000651

PATIENT
  Age: 88 Year
  Sex: Female

DRUGS (1)
  1. TARCEVA [Suspect]
     Indication: PRODUCT USED FOR UNKNOWN INDICATION
     Dosage: (150 MG,QD),ORAL ; (100 MG,),ORAL ; (50 MG),ORAL
     Route: 048

REACTIONS (2)
  - DIARRHOEA [None]
  - DYSGEUSIA [None]
